FAERS Safety Report 9340268 (Version 2)
Quarter: 2013Q3

REPORT INFORMATION
  Report Type: Spontaneous
  Country: IT (occurrence: None)
  Receive Date: 20130605
  Receipt Date: 20130723
  Transmission Date: 20140515
  Serious: Yes (Hospitalization)
  Sender: FDA-Public Use
  Company Number: IT-011886

PATIENT
  Age: 9 Month
  Sex: Male

DRUGS (2)
  1. MINIRIN [Suspect]
     Indication: DIABETES INSIPIDUS
     Dosage: 25 UG, TOTAL, STRENGTH: 0,1 MG/ML
     Route: 045
     Dates: start: 20130422, end: 20130422
  2. CETIRIZINE [Concomitant]

REACTIONS (3)
  - Hypotonia [None]
  - Tremor [None]
  - Cyanosis [None]
